FAERS Safety Report 13263126 (Version 1)
Quarter: 2017Q1

REPORT INFORMATION
  Report Type: Spontaneous
  Country: US (occurrence: US)
  Receive Date: 20170221
  Receipt Date: 20170221
  Transmission Date: 20170428
  Serious: Yes (Hospitalization)
  Sender: FDA-Public Use
  Company Number: None

PATIENT
  Age: 63 Year
  Sex: Male
  Weight: 86.18 kg

DRUGS (1)
  1. VORINOSTAT 400MG MERCK [Suspect]
     Active Substance: VORINOSTAT
     Indication: CHRONIC LYMPHOCYTIC LEUKAEMIA
     Dosage: 400 MG DAYS 1-5 + 8-12 PO
     Route: 048
     Dates: start: 20131014, end: 20131111

REACTIONS (3)
  - Abdominal pain [None]
  - Intestinal obstruction [None]
  - Colonic abscess [None]

NARRATIVE: CASE EVENT DATE: 20131217
